FAERS Safety Report 18660533 (Version 9)
Quarter: 2022Q1

REPORT INFORMATION
  Report Type: Other
  Country: CN (occurrence: None)
  Receive Date: 20201224
  Receipt Date: 20220203
  Transmission Date: 20220423
  Serious: Yes (Other)
  Sender: FDA-Public Use
  Company Number: CN-ROCHE-1874464

PATIENT
  Age: 64 Year
  Sex: Female
  Weight: 50 kg

DRUGS (1)
  1. AVASTIN [Suspect]
     Active Substance: BEVACIZUMAB
     Indication: Lung adenocarcinoma
     Route: 041
     Dates: start: 20160328, end: 20210126

REACTIONS (32)
  - Toothache [Recovered/Resolved]
  - Procedural haemorrhage [Unknown]
  - Renal impairment [Unknown]
  - Loose tooth [Unknown]
  - Tooth extraction [Recovering/Resolving]
  - Impaired healing [Unknown]
  - Toothache [Recovered/Resolved]
  - Gingivitis [Recovered/Resolved]
  - Cholelithiasis [Unknown]
  - Constipation [Unknown]
  - Nasopharyngitis [Unknown]
  - Pyrexia [Unknown]
  - Eczema [Unknown]
  - Acarodermatitis [Unknown]
  - Headache [Unknown]
  - Fatigue [Unknown]
  - Discomfort [Unknown]
  - Cough [Unknown]
  - Pyrexia [Unknown]
  - Oropharyngeal pain [Unknown]
  - Blood creatinine increased [Unknown]
  - Blood creatinine increased [Unknown]
  - Dental caries [Unknown]
  - Pulpitis dental [Unknown]
  - Tooth pulp haemorrhage [Unknown]
  - Dental caries [Unknown]
  - Renal impairment [Unknown]
  - Insomnia [Unknown]
  - Cerebral thrombosis [Unknown]
  - Intervertebral disc protrusion [Unknown]
  - Dizziness [Unknown]
  - Protein urine present [Unknown]

NARRATIVE: CASE EVENT DATE: 20200102
